FAERS Safety Report 22222209 (Version 16)
Quarter: 2024Q4

REPORT INFORMATION
  Report Type: Report from Study
  Country: GB (occurrence: GB)
  Receive Date: 20230418
  Receipt Date: 20241118
  Transmission Date: 20250114
  Serious: Yes (Hospitalization, Other)
  Sender: ABBVIE
  Company Number: GB-ABBVIE-4732295

PATIENT
  Age: 69 Year
  Sex: Male

DRUGS (15)
  1. CARBIDOPA\LEVODOPA [Suspect]
     Active Substance: CARBIDOPA\LEVODOPA
     Indication: Parkinson^s disease
     Dosage: 20MGS/5MGS; MD 8.0 MLS, CR 1.5 MLS, ED 1.5 MLS
     Route: 050
     Dates: end: 2023
  2. CARBIDOPA\LEVODOPA [Suspect]
     Active Substance: CARBIDOPA\LEVODOPA
     Dosage: MD: 8.2, CR: 1.9, ED: 1.5
     Route: 050
     Dates: start: 2023, end: 202307
  3. CARBIDOPA\LEVODOPA [Suspect]
     Active Substance: CARBIDOPA\LEVODOPA
     Dosage: MD: 8.4 MLS, CR: 2.6 MLS/HR, ED: 1.9 MLS?STOP DATE 2024
     Route: 050
     Dates: start: 20240212
  4. CARBIDOPA\LEVODOPA [Suspect]
     Active Substance: CARBIDOPA\LEVODOPA
     Dosage: CR: INCREASED FROM 2.1MLS TO 2.3MLS,?FIRST AND LAST ADMIN DATE: 2024
     Route: 050
  5. CARBIDOPA\LEVODOPA [Suspect]
     Active Substance: CARBIDOPA\LEVODOPA
     Dosage: MD: 8.4 MLS CR:  2.1 ML/HR  ED:1.7 ML?FIRST ADMIN DATE DEC 2023?LAST ADMIN DATE: DEC 2023
     Route: 050
  6. CARBIDOPA\LEVODOPA [Suspect]
     Active Substance: CARBIDOPA\LEVODOPA
     Dosage: MD: 8.4 MLS  CR:  1.9 ML/HR  ED:1.7 ML
     Route: 050
     Dates: start: 202312, end: 20240212
  7. CARBIDOPA\LEVODOPA [Suspect]
     Active Substance: CARBIDOPA\LEVODOPA
     Dosage: MD 8.0 MLS, CR 1.7 MLS, ED 1.5 ML
     Route: 050
     Dates: start: 2023, end: 2023
  8. CARBIDOPA\LEVODOPA [Suspect]
     Active Substance: CARBIDOPA\LEVODOPA
     Dosage: MD: 8.4MLS CR: 2.3ML ED: 1.9ML?START AND STOP DATE 2024
     Route: 050
  9. CITALOPRAM [Concomitant]
     Active Substance: CITALOPRAM
     Indication: Product used for unknown indication
  10. SINEMET CR [Concomitant]
     Active Substance: CARBIDOPA\LEVODOPA
     Indication: Product used for unknown indication
  11. BENSERAZIDE HYDROCHLORIDE\LEVODOPA [Concomitant]
     Active Substance: BENSERAZIDE HYDROCHLORIDE\LEVODOPA
     Indication: Product used for unknown indication
     Dosage: 12.5/50MGS X1 AT 08.00AM AND X HALF TABLET (25MGS), FREQUENCY TEXT: 10.00 AM,12.00,14.00,16.00,18...
  12. AMANTADINE [Concomitant]
     Active Substance: AMANTADINE
     Indication: Product used for unknown indication
     Dosage: 100MGS X1 BD?FREQUENCY TEXT: AT 08.00AM AND 18.00PM
  13. CARBIDOPA\LEVODOPA [Concomitant]
     Active Substance: CARBIDOPA\LEVODOPA
     Indication: Product used for unknown indication
     Dosage: 25/100MGS X1 08.00,10.00AM,
  14. FLUDROCORTISONE [Concomitant]
     Active Substance: FLUDROCORTISONE
     Indication: Product used for unknown indication
  15. CLONAZEPAM [Concomitant]
     Active Substance: CLONAZEPAM
     Indication: Product used for unknown indication

REACTIONS (43)
  - Urinary tract infection [Recovered/Resolved]
  - Urinary retention [Not Recovered/Not Resolved]
  - Feeling abnormal [Unknown]
  - Drug ineffective [Unknown]
  - Device dislocation [Recovered/Resolved]
  - Gait inability [Not Recovered/Not Resolved]
  - Device issue [Not Recovered/Not Resolved]
  - Frustration tolerance decreased [Not Recovered/Not Resolved]
  - Pain [Unknown]
  - Condition aggravated [Not Recovered/Not Resolved]
  - Infection [Recovered/Resolved]
  - Suicide threat [Unknown]
  - Diarrhoea [Not Recovered/Not Resolved]
  - Constipation [Recovered/Resolved]
  - On and off phenomenon [Unknown]
  - Depression [Unknown]
  - Anaemia [Unknown]
  - Hypotension [Not Recovered/Not Resolved]
  - Mobility decreased [Recovered/Resolved]
  - Freezing phenomenon [Unknown]
  - Malaise [Unknown]
  - Fatigue [Not Recovered/Not Resolved]
  - Loss of personal independence in daily activities [Unknown]
  - Gastric pH decreased [Not Recovered/Not Resolved]
  - Pain in extremity [Not Recovered/Not Resolved]
  - Therapeutic product effect incomplete [Unknown]
  - Prostatomegaly [Unknown]
  - Hypersomnia [Not Recovered/Not Resolved]
  - Stoma site haemorrhage [Recovered/Resolved]
  - Coinfection [Unknown]
  - Muscle rigidity [Unknown]
  - Parkinson^s disease [Not Recovered/Not Resolved]
  - Dyskinesia [Unknown]
  - Unevaluable event [Unknown]
  - Loss of personal independence in daily activities [Not Recovered/Not Resolved]
  - Fall [Not Recovered/Not Resolved]
  - Device dislocation [Not Recovered/Not Resolved]
  - Bedridden [Unknown]
  - Fall [Recovered/Resolved]
  - Mobility decreased [Not Recovered/Not Resolved]
  - Urinary tract infection [Not Recovered/Not Resolved]
  - Headache [Unknown]
  - Tremor [Not Recovered/Not Resolved]

NARRATIVE: CASE EVENT DATE: 20230101
